FAERS Safety Report 6224700-6 (Version None)
Quarter: 2009Q2

REPORT INFORMATION
  Report Type: 
  Country: None (occurrence: None)
  Receive Date: 20090612
  Receipt Date: 20090326
  Transmission Date: 20091009
  Serious: No
  Sender: FDA-Public Use
  Company Number: US-ABBOTT-09P-163-0564833-00

PATIENT
  Sex: Male

DRUGS (10)
  1. HUMIRA [Suspect]
     Indication: RHEUMATOID ARTHRITIS
     Dates: start: 20081101, end: 20081201
  2. HUMIRA [Suspect]
     Route: 058
     Dates: start: 20081201
  3. METHOTREXATE [Concomitant]
     Indication: DRUG USE FOR UNKNOWN INDICATION
  4. FLOMAX [Concomitant]
     Indication: PROSTATIC DISORDER
  5. AVIDART [Concomitant]
     Indication: DRUG USE FOR UNKNOWN INDICATION
  6. DILANTIN [Concomitant]
     Indication: DRUG USE FOR UNKNOWN INDICATION
     Dosage: 3 AM, 2 PM
  7. SIMVASTATIN [Concomitant]
     Indication: BLOOD PRESSURE
  8. LEXAPRO [Concomitant]
     Indication: DRUG USE FOR UNKNOWN INDICATION
  9. PREDNISONE [Concomitant]
     Indication: DRUG USE FOR UNKNOWN INDICATION
  10. DIOVAN [Concomitant]
     Indication: BLOOD PRESSURE

REACTIONS (3)
  - DRUG EFFECT DECREASED [None]
  - INJECTION SITE IRRITATION [None]
  - INJECTION SITE PAIN [None]
